FAERS Safety Report 8261164-5 (Version None)
Quarter: 2012Q2

REPORT INFORMATION
  Report Type: 
  Country: None (occurrence: None)
  Receive Date: 20120405
  Receipt Date: 20120404
  Transmission Date: 20120825
  Serious: Yes (Death, Hospitalization, Other)
  Sender: FDA-Public Use
  Company Number: PHHY2010GB03506

PATIENT
  Sex: Male

DRUGS (3)
  1. CLOZARIL [Suspect]
     Indication: SCHIZOPHRENIA
     Route: 048
     Dates: start: 19990301
  2. RADIOTHERAPY [Concomitant]
     Route: 065
  3. CHEMOTHERAPEUTICS NOS [Concomitant]

REACTIONS (5)
  - WEIGHT DECREASED [None]
  - FATIGUE [None]
  - NEOPLASM MALIGNANT [None]
  - TONGUE NEOPLASM MALIGNANT STAGE UNSPECIFIED [None]
  - SOMNOLENCE [None]
